FAERS Safety Report 14657153 (Version 1)
Quarter: 2018Q1

REPORT INFORMATION
  Report Type: Spontaneous
  Country: US (occurrence: US)
  Receive Date: 20180319
  Receipt Date: 20180319
  Transmission Date: 20180509
  Serious: Yes (Other)
  Sender: FDA-Public Use
  Company Number: US-PFIZER INC-2018112221

PATIENT
  Sex: Female

DRUGS (2)
  1. LYRICA [Suspect]
     Active Substance: PREGABALIN
     Dosage: UNK
  2. CELEBREX [Suspect]
     Active Substance: CELECOXIB
     Dosage: UNK

REACTIONS (7)
  - Tooth loss [Unknown]
  - Neuropathy peripheral [Unknown]
  - Pain [Unknown]
  - Fibromyalgia [Unknown]
  - Arthritis [Unknown]
  - Diabetes mellitus [Unknown]
  - Toothache [Unknown]
